FAERS Safety Report 9146494 (Version 1)
Quarter: 2013Q1

REPORT INFORMATION
  Report Type: Spontaneous
  Country: US (occurrence: US)
  Receive Date: 20130307
  Receipt Date: 20130307
  Transmission Date: 20140127
  Serious: No
  Sender: FDA-Public Use
  Company Number: US-GLAXOSMITHKLINE-A0975147A

PATIENT
  Age: 69 Year
  Sex: Female

DRUGS (5)
  1. REQUIP [Suspect]
     Indication: RESTLESS LEGS SYNDROME
     Dosage: 1MG AT NIGHT
     Route: 048
     Dates: start: 2007
  2. MELATONIN [Concomitant]
  3. COUMADIN [Concomitant]
  4. METOPROLOL [Concomitant]
  5. WATER PILL [Concomitant]

REACTIONS (3)
  - Insomnia [Recovered/Resolved]
  - Dyskinesia [Unknown]
  - Product quality issue [Unknown]
